FAERS Safety Report 9322070 (Version 1)
Quarter: 2013Q2

REPORT INFORMATION
  Report Type: Spontaneous
  Country: US (occurrence: US)
  Receive Date: 20130531
  Receipt Date: 20130531
  Transmission Date: 20140414
  Serious: Yes (Other)
  Sender: FDA-Public Use
  Company Number: US-ASTRAZENECA-2013SE36515

PATIENT
  Age: 51 Year
  Sex: Male
  Weight: 104.3 kg

DRUGS (5)
  1. NEXIUM [Suspect]
     Indication: GASTROOESOPHAGEAL REFLUX DISEASE
     Dosage: DAILY
     Route: 048
     Dates: start: 2003, end: 2009
  2. NEXIUM [Suspect]
     Indication: GASTROOESOPHAGEAL REFLUX DISEASE
     Dosage: DAILY
     Route: 048
     Dates: start: 201302, end: 20130521
  3. PRILOSEC OTC [Suspect]
     Indication: GASTROOESOPHAGEAL REFLUX DISEASE
     Dosage: DAILY
     Route: 048
     Dates: start: 2011, end: 201302
  4. BLOOD PRESSURE MEDICATION [Concomitant]
     Indication: BLOOD PRESSURE ABNORMAL
     Dosage: BID
     Dates: start: 2009
  5. MEDICATION FOR WATER RETENTION [Concomitant]
     Indication: FLUID RETENTION
     Dosage: DAILY
     Dates: start: 2010

REACTIONS (10)
  - Neoplasm malignant [Unknown]
  - Pain [Unknown]
  - Diverticulitis [Unknown]
  - Gastric disorder [Unknown]
  - Throat irritation [Unknown]
  - Hypertension [Unknown]
  - Dyspepsia [Unknown]
  - Diarrhoea [Unknown]
  - Headache [Unknown]
  - Intentional drug misuse [Unknown]
